FAERS Safety Report 4649994-X (Version None)
Quarter: 2005Q2

REPORT INFORMATION
  Report Type: 
  Country: None (occurrence: None)
  Receive Date: 20050502
  Receipt Date: 20050421
  Transmission Date: 20051028
  Serious: Yes (Other)
  Sender: FDA-Public Use
  Company Number: PHBS2005BR05858

PATIENT
  Age: 24 Year
  Sex: Female
  Weight: 55 kg

DRUGS (4)
  1. MELLARIL [Suspect]
     Indication: DEPRESSION
     Dosage: 50 MG, QD
     Route: 048
  2. MELLARIL [Suspect]
     Dosage: 100 MG, QD
     Route: 048
     Dates: start: 20050418
  3. ^TRICLAR^ CONTRACEPTIVE [Concomitant]
     Dosage: 1 DF, QD
     Route: 048
  4. DIAZEPAM [Concomitant]
     Dosage: 10 DF, ONCE/SINGLE
     Route: 048

REACTIONS (4)
  - CONFUSIONAL STATE [None]
  - DIZZINESS [None]
  - HEADACHE [None]
  - SOMNOLENCE [None]
